FAERS Safety Report 7398545-8 (Version None)
Quarter: 2011Q2

REPORT INFORMATION
  Report Type: 
  Country: None (occurrence: None)
  Receive Date: 20110407
  Receipt Date: 20110330
  Transmission Date: 20111010
  Serious: No
  Sender: FDA-Public Use
  Company Number: US-BIOGENIDEC-2011BI011346

PATIENT
  Sex: Male

DRUGS (1)
  1. TYSABRI [Suspect]
     Indication: MULTIPLE SCLEROSIS
     Route: 042
     Dates: start: 20110316

REACTIONS (10)
  - JOINT SWELLING [None]
  - DYSSTASIA [None]
  - ARTHRALGIA [None]
  - GAIT DISTURBANCE [None]
  - MUSCULOSKELETAL PAIN [None]
  - HEADACHE [None]
  - OEDEMA PERIPHERAL [None]
  - HEPATIC ENZYME INCREASED [None]
  - ERYTHEMA [None]
  - DRUG INEFFECTIVE [None]
